FAERS Safety Report 11023970 (Version 2)
Quarter: 2015Q2

REPORT INFORMATION
  Report Type: Spontaneous
  Country: US (occurrence: US)
  Receive Date: 20150413
  Receipt Date: 20150525
  Transmission Date: 20150821
  Serious: Yes (Other)
  Sender: FDA-Public Use
  Company Number: US-JNJFOC-20110805495

PATIENT
  Sex: Male

DRUGS (3)
  1. LEVAQUIN [Suspect]
     Active Substance: LEVOFLOXACIN
     Indication: INFECTION
     Route: 042
  2. LEVAQUIN [Suspect]
     Active Substance: LEVOFLOXACIN
     Indication: BACTERIAL INFECTION
     Route: 048
  3. PREDNISONE. [Suspect]
     Active Substance: PREDNISONE
     Indication: PRODUCT USED FOR UNKNOWN INDICATION
     Route: 065

REACTIONS (2)
  - Tendonitis [Recovering/Resolving]
  - Rotator cuff syndrome [Recovering/Resolving]
